FAERS Safety Report 22251870 (Version 1)
Quarter: 2023Q2

REPORT INFORMATION
  Report Type: Spontaneous
  Country: KR (occurrence: KR)
  Receive Date: 20230425
  Receipt Date: 20230425
  Transmission Date: 20230722
  Serious: Yes (Other)
  Sender: FDA-Public Use
  Company Number: KR-KOWA-23JP000514AA

PATIENT
  Age: 72 Year
  Sex: Female

DRUGS (1)
  1. EZETIMIBE\PITAVASTATIN CALCIUM [Suspect]
     Active Substance: EZETIMIBE\PITAVASTATIN CALCIUM
     Indication: Product used for unknown indication
     Dosage: UNK, UNK
     Route: 048
     Dates: start: 202304

REACTIONS (1)
  - Quadriparesis [Unknown]

NARRATIVE: CASE EVENT DATE: 20230401
